FAERS Safety Report 14798569 (Version 1)
Quarter: 2018Q2

REPORT INFORMATION
  Report Type: Spontaneous
  Country: US (occurrence: US)
  Receive Date: 20180415
  Receipt Date: 20180415
  Transmission Date: 20180711
  Serious: Yes (Hospitalization)
  Sender: FDA-Public Use
  Company Number: None

PATIENT

DRUGS (1)
  1. ESTROGEN [Suspect]
     Active Substance: ESTROGENS

REACTIONS (2)
  - Urticaria [None]
  - Rash [None]
